FAERS Safety Report 6761196-X (Version None)
Quarter: 2010Q2

REPORT INFORMATION
  Report Type: 
  Country: None (occurrence: None)
  Receive Date: 20100608
  Receipt Date: 20100527
  Transmission Date: 20101027
  Serious: Yes (Other)
  Sender: FDA-Public Use
  Company Number: US-WYE-H15439710

PATIENT
  Sex: Male
  Weight: 2.72 kg

DRUGS (3)
  1. EFFEXOR [Suspect]
     Indication: ANXIETY
     Dosage: ^LOWEST DOSE^
     Route: 064
     Dates: start: 20070101
  2. TOPROL-XL [Concomitant]
     Dosage: UNKNOWN
     Route: 064
  3. LIPITOR [Concomitant]
     Dosage: UNKNOWN
     Route: 064

REACTIONS (5)
  - DRUG EXPOSURE DURING PREGNANCY [None]
  - DRUG EXPOSURE VIA BREAST MILK [None]
  - HYPOGLYCAEMIA NEONATAL [None]
  - LETHARGY [None]
  - UNRESPONSIVE TO STIMULI [None]
